FAERS Safety Report 7340560-4 (Version None)
Quarter: 2011Q1

REPORT INFORMATION
  Report Type: 
  Country: None (occurrence: None)
  Receive Date: 20110309
  Receipt Date: 20110303
  Transmission Date: 20110831
  Serious: Yes (Other)
  Sender: FDA-Public Use
  Company Number: CA-PFIZER INC-2011047784

PATIENT
  Age: 35 Year
  Sex: Female

DRUGS (2)
  1. CHAMPIX [Suspect]
     Indication: SMOKING CESSATION THERAPY
     Dosage: 1 MG, 2X/DAY
  2. CHAMPIX [Suspect]
     Dosage: 0.5 MG, 2X/DAY

REACTIONS (3)
  - TIC [None]
  - FEELING ABNORMAL [None]
  - AGGRESSION [None]
